FAERS Safety Report 7641998-8 (Version None)
Quarter: 2011Q3

REPORT INFORMATION
  Report Type: 
  Country: None (occurrence: None)
  Receive Date: 20110728
  Receipt Date: 20110720
  Transmission Date: 20111222
  Serious: Yes (Other)
  Sender: FDA-Public Use
  Company Number: US-PERRIGO-11US005909

PATIENT
  Sex: Male
  Weight: 49.887 kg

DRUGS (1)
  1. ACETAMINOPHEN [Suspect]
     Indication: INTENTIONAL SELF-INJURY
     Dosage: 12-14 CAPLETS, ONCE
     Route: 048
     Dates: start: 20110719, end: 20110719

REACTIONS (3)
  - INTENTIONAL OVERDOSE [None]
  - VISION BLURRED [None]
  - DIZZINESS [None]
